FAERS Safety Report 5403766-7 (Version None)
Quarter: 2007Q3

REPORT INFORMATION
  Report Type: 
  Country: None (occurrence: None)
  Receive Date: 20070802
  Receipt Date: 20070723
  Transmission Date: 20080115
  Serious: Yes (Life-Threatening)
  Sender: FDA-Public Use
  Company Number: HQWYE313831JUL07

PATIENT
  Age: 29 Year
  Sex: Female

DRUGS (2)
  1. ZOSYN [Suspect]
     Indication: PYELONEPHRITIS
     Dosage: UNKNOWN
     Route: 042
  2. ZOSYN [Suspect]
     Indication: SEPSIS

REACTIONS (3)
  - DYSPNOEA [None]
  - RASH [None]
  - SWELLING [None]
